FAERS Safety Report 6245365-3 (Version None)
Quarter: 2009Q2

REPORT INFORMATION
  Report Type: 
  Country: None (occurrence: None)
  Receive Date: 20090625
  Receipt Date: 20090623
  Transmission Date: 20091009
  Serious: Yes (Other)
  Sender: FDA-Public Use
  Company Number: FR-BRISTOL-MYERS SQUIBB COMPANY-14611123

PATIENT
  Age: 68 Year
  Sex: Male
  Weight: 74 kg

DRUGS (3)
  1. ELISOR [Suspect]
     Indication: HYPERCHOLESTEROLAEMIA
     Dosage: 1 DF- 1 TAB/D
     Dates: start: 20090101, end: 20090501
  2. INSULIN [Concomitant]
     Indication: DIABETES MELLITUS
     Route: 058
     Dates: start: 19730701
  3. INSULIN [Concomitant]
     Indication: TYPE 1 DIABETES MELLITUS
     Route: 058
     Dates: start: 19730701

REACTIONS (1)
  - INFLAMMATION [None]
